FAERS Safety Report 7461797-X (Version None)
Quarter: 2011Q2

REPORT INFORMATION
  Report Type: 
  Country: None (occurrence: None)
  Receive Date: 20110506
  Receipt Date: 20091114
  Transmission Date: 20111010
  Serious: Yes (Hospitalization, Other)
  Sender: FDA-Public Use
  Company Number: US-BAYER-200939327NA

PATIENT
  Age: 67 Year
  Sex: Female
  Weight: 70.295 kg

DRUGS (15)
  1. TRASYLOL [Suspect]
     Indication: CORONARY ARTERY BYPASS
     Route: 042
     Dates: start: 20070321
  2. PLAVIX [Concomitant]
     Dosage: 75 MG, QD
     Route: 048
     Dates: end: 20070313
  3. ALBUMIN (HUMAN) [Concomitant]
     Dosage: 25 G
     Dates: start: 20070328
  4. ACYCLOVIR [Concomitant]
     Indication: EYE INFECTION VIRAL
  5. PHYTONADIONE [Concomitant]
  6. TOPROL-XL [Concomitant]
     Dosage: 25 MG, QD
     Route: 048
  7. VANCOMYCIN [Concomitant]
     Dosage: 1 G
     Dates: start: 20070424
  8. ASPIRIN [Concomitant]
     Dosage: 81 MG, QD
     Route: 048
  9. ALBUMIN (HUMAN) [Concomitant]
     Dosage: 25 G
     Dates: start: 20070404
  10. TRASYLOL [Suspect]
     Indication: AORTIC VALVE REPLACEMENT
  11. SYNTHROID [Concomitant]
     Dosage: UNK
     Route: 048
     Dates: start: 20070307, end: 20070404
  12. LIPITOR [Concomitant]
     Dosage: 20 MG, QD
     Route: 048
     Dates: start: 20020101
  13. ALBUMIN (HUMAN) [Concomitant]
     Dosage: 25 G
     Dates: start: 20070323
  14. RED BLOOD CELLS [Concomitant]
     Dosage: 2 UNITS
     Dates: start: 20070331
  15. RED BLOOD CELLS [Concomitant]
     Dosage: 2 UNITS

REACTIONS (16)
  - HEARING IMPAIRED [None]
  - RENAL FAILURE [None]
  - PAIN [None]
  - INJURY [None]
  - ANHEDONIA [None]
  - RENAL IMPAIRMENT [None]
  - STRESS [None]
  - EYE INFECTION VIRAL [None]
  - RENAL INJURY [None]
  - UNEVALUABLE EVENT [None]
  - FEAR [None]
  - ALOPECIA [None]
  - VISUAL IMPAIRMENT [None]
  - EMOTIONAL DISTRESS [None]
  - ANXIETY [None]
  - TRAUMATIC LUNG INJURY [None]
